FAERS Safety Report 10257272 (Version 5)
Quarter: 2014Q4

REPORT INFORMATION
  Report Type: Spontaneous
  Country: US (occurrence: None)
  Receive Date: 20140620
  Receipt Date: 20141205
  Transmission Date: 20150528
  Serious: Yes (Death, Other)
  Sender: FDA-Public Use
  Company Number: ADR-2014-00904

PATIENT
  Age: 17 Year
  Sex: Male

DRUGS (1)
  1. LIORESAL [Suspect]
     Active Substance: BACLOFEN
     Indication: MUSCLE SPASTICITY
     Dosage: 727 MCG/DAY, SEE B5

REACTIONS (20)
  - Vomiting [None]
  - Retching [None]
  - Malaise [None]
  - Overdose [None]
  - Infectious mononucleosis [None]
  - Lethargy [None]
  - Discomfort [None]
  - Underdose [None]
  - Gastrointestinal haemorrhage [None]
  - Intestinal ischaemia [None]
  - Gastrointestinal necrosis [None]
  - Cerebral palsy [None]
  - Unresponsive to stimuli [None]
  - Sedation [None]
  - Nausea [None]
  - Feeling abnormal [None]
  - Crying [None]
  - Pupillary disorder [None]
  - Agitation [None]
  - Drug withdrawal syndrome [None]
